FAERS Safety Report 4535211-8 (Version None)
Quarter: 2004Q4

REPORT INFORMATION
  Report Type: 
  Country: None (occurrence: None)
  Receive Date: 20041222
  Receipt Date: 20041207
  Transmission Date: 20050328
  Serious: Yes (Hospitalization)
  Sender: FDA-Public Use
  Company Number: US-MERCK-0412USA00937

PATIENT
  Sex: Female

DRUGS (2)
  1. VYTORIN [Suspect]
     Route: 048
     Dates: start: 20040101
  2. VYTORIN [Suspect]
     Route: 048
     Dates: start: 20040101, end: 20040101

REACTIONS (2)
  - CHEST PAIN [None]
  - DIZZINESS [None]
